FAERS Safety Report 11120705 (Version 1)
Quarter: 2015Q2

REPORT INFORMATION
  Report Type: Spontaneous
  Country: US (occurrence: US)
  Receive Date: 20150519
  Receipt Date: 20150519
  Transmission Date: 20150821
  Serious: No
  Sender: FDA-Public Use
  Company Number: US-BAYER-2015-197704

PATIENT
  Age: 83 Year
  Sex: Female
  Weight: 46.26 kg

DRUGS (3)
  1. FLONASE [Concomitant]
     Active Substance: FLUTICASONE PROPIONATE
  2. MIRALAX [Suspect]
     Active Substance: POLYETHYLENE GLYCOL 3350
     Indication: CONSTIPATION
     Dosage: 1/2 DF, QD
     Route: 048
     Dates: start: 2012, end: 2012
  3. CITRACAL PETITES [Concomitant]
     Active Substance: CALCIUM CITRATE
     Dosage: UNK

REACTIONS (2)
  - Epigastric discomfort [Not Recovered/Not Resolved]
  - Incorrect drug administration duration [None]

NARRATIVE: CASE EVENT DATE: 2012
